FAERS Safety Report 24042042 (Version 1)
Quarter: 2024Q3

REPORT INFORMATION
  Report Type: Spontaneous
  Country: US (occurrence: None)
  Receive Date: 20240701
  Receipt Date: 20240701
  Transmission Date: 20241016
  Serious: Yes (Disabling, Other)
  Sender: Public
  Company Number: None

PATIENT
  Age: 21 Year
  Sex: Female
  Weight: 50.4 kg

DRUGS (3)
  1. METRONIDAZOLE [Suspect]
     Active Substance: METRONIDAZOLE
     Indication: Bacterial vaginosis
     Dosage: 14 TABLEYS TWICE A DAY ORAL
     Route: 048
     Dates: start: 20240628, end: 20240629
  2. FLUCONAZOLE [Suspect]
     Active Substance: FLUCONAZOLE
  3. TESTOSTERONE GEL 1.62% [Concomitant]
     Active Substance: TESTOSTERONE

REACTIONS (11)
  - Fall [None]
  - Balance disorder [None]
  - Mental status changes [None]
  - Tremor [None]
  - Speech disorder [None]
  - Fatigue [None]
  - Taste disorder [None]
  - Brain fog [None]
  - Therapy cessation [None]
  - Affect lability [None]
  - Mental impairment [None]

NARRATIVE: CASE EVENT DATE: 20240629
